FAERS Safety Report 24109198 (Version 1)
Quarter: 2024Q3

REPORT INFORMATION
  Report Type: Spontaneous
  Country: US (occurrence: US)
  Receive Date: 20240718
  Receipt Date: 20240718
  Transmission Date: 20241016
  Serious: No
  Sender: STI PHARMA
  Company Number: US-STI Pharma LLC-2159259

PATIENT
  Age: 64 Year
  Sex: Female

DRUGS (1)
  1. ETHAMBUTOL HYDROCHLORIDE [Suspect]
     Active Substance: ETHAMBUTOL HYDROCHLORIDE

REACTIONS (1)
  - Treatment failure [Unknown]
